FAERS Safety Report 23933556 (Version 1)
Quarter: 2024Q2

REPORT INFORMATION
  Report Type: Spontaneous
  Country: HU (occurrence: HU)
  Receive Date: 20240603
  Receipt Date: 20240603
  Transmission Date: 20240716
  Serious: Yes (Other)
  Sender: FDA-Public Use
  Company Number: HU-AMGEN-HUNSP2024071126

PATIENT
  Age: 76 Year
  Sex: Female

DRUGS (34)
  1. PROLIA [Suspect]
     Active Substance: DENOSUMAB
     Indication: Osteoporosis postmenopausal
     Dosage: 60 MILLIGRAM, Q6MO
     Route: 058
     Dates: start: 20230216
  2. ENOXAPARIN SODIUM [Concomitant]
     Active Substance: ENOXAPARIN SODIUM
     Dosage: UNK
     Dates: start: 20210808
  3. NIMESULIDE [Concomitant]
     Active Substance: NIMESULIDE
     Dosage: UNK
     Dates: start: 20210906
  4. VITAMIN D3 [Concomitant]
     Active Substance: CHOLECALCIFEROL
     Dosage: UNK
     Dates: start: 20220111
  5. VITAMIN D3 [Concomitant]
     Active Substance: CHOLECALCIFEROL
     Dosage: UNK
     Dates: start: 20230215
  6. VITAMIN D3 [Concomitant]
     Active Substance: CHOLECALCIFEROL
     Dosage: UNK
     Dates: start: 20230823
  7. VITAMIN D3 [Concomitant]
     Active Substance: CHOLECALCIFEROL
     Dosage: UNK
     Dates: start: 20240208
  8. BERES CALCIUM [Concomitant]
     Dosage: UNK
     Dates: start: 20220111
  9. Curidol [Concomitant]
     Dosage: UNK
     Dates: start: 20220823
  10. TIZANIDINE [Concomitant]
     Active Substance: TIZANIDINE
     Dosage: UNK
     Dates: start: 20220823
  11. KETOSPRAY [Concomitant]
     Dosage: UNK
     Dates: start: 20220823
  12. CITROKALCIUM [Concomitant]
     Dosage: UNK
     Dates: start: 20240208
  13. CITROKALCIUM [Concomitant]
     Dosage: UNK
     Dates: start: 20230215
  14. CITROKALCIUM [Concomitant]
     Dosage: UNK
     Dates: start: 20230823
  15. SULODEXIDE [Concomitant]
     Active Substance: SULODEXIDE
     Dosage: UNK
     Dates: start: 20240215
  16. CLOSANASOL [Concomitant]
     Dosage: UNK
     Dates: start: 20240403
  17. CLOSANASOL [Concomitant]
     Dosage: UNK
     Dates: start: 20240424
  18. VALSARTAN [Concomitant]
     Active Substance: VALSARTAN
  19. AMLODIPINE BESYLATE [Concomitant]
     Active Substance: AMLODIPINE BESYLATE
  20. MAGNESIUM [Concomitant]
     Active Substance: MAGNESIUM
  21. VITAMIN C [Concomitant]
     Active Substance: ASCORBIC ACID
  22. BISOPROLOL [Concomitant]
     Active Substance: BISOPROLOL\BISOPROLOL FUMARATE
  23. RILMENIDINE [Concomitant]
     Active Substance: RILMENIDINE
  24. Noacid [Concomitant]
  25. PANCRELIPASE [Concomitant]
     Active Substance: PANCRELIPASE
  26. CALCIUM [Concomitant]
     Active Substance: CALCIUM
  27. EUTHYROX [Concomitant]
     Active Substance: LEVOTHYROXINE SODIUM
     Dosage: 100 MICROGRAM, QD, OVER 5 DAYS
     Dates: start: 2007
  28. EUTHYROX [Concomitant]
     Active Substance: LEVOTHYROXINE SODIUM
     Dosage: 100 MICROGRAM, QD, OVER 5 DAYS
     Dates: start: 20100224
  29. DIETARY SUPPLEMENT\HERBALS\MILK THISTLE [Concomitant]
     Active Substance: MILK THISTLE
  30. CAPTOPRIL [Concomitant]
     Active Substance: CAPTOPRIL
  31. DIOSMIN\HESPERIDIN [Concomitant]
     Active Substance: DIOSMIN\HESPERIDIN
  32. HYDROCHLOROTHIAZIDE\VALSARTAN [Concomitant]
     Active Substance: HYDROCHLOROTHIAZIDE\VALSARTAN
     Dosage: 160/12.5 MG,
  33. PIRACETAM [Concomitant]
     Active Substance: PIRACETAM
     Dosage: UNK
     Dates: start: 20210927
  34. PIRACETAM [Concomitant]
     Active Substance: PIRACETAM
     Dosage: UNK
     Dates: start: 20230116

REACTIONS (13)
  - Autoimmune thyroiditis [Unknown]
  - Idiopathic urticaria [Not Recovered/Not Resolved]
  - Cough [Unknown]
  - Dyspnoea [Unknown]
  - COVID-19 [Unknown]
  - Rash erythematous [Unknown]
  - Hyperkeratosis [Unknown]
  - Gastrooesophageal reflux disease [Unknown]
  - Diverticulum [Unknown]
  - Varicose vein [Unknown]
  - Angiopathy [Unknown]
  - Fibroma [Unknown]
  - Peripheral swelling [Recovered/Resolved]

NARRATIVE: CASE EVENT DATE: 20230201
